FAERS Safety Report 8537233-9 (Version None)
Quarter: 2012Q3

REPORT INFORMATION
  Report Type: 
  Country: None (occurrence: None)
  Receive Date: 20120725
  Receipt Date: 20120717
  Transmission Date: 20120928
  Serious: Yes (Hospitalization, Other)
  Sender: FDA-Public Use
  Company Number: US-ELI_LILLY_AND_COMPANY-US201103004178

PATIENT
  Sex: Female

DRUGS (3)
  1. ORENCIA [Concomitant]
     Dosage: UNK
  2. FORTEO [Suspect]
     Indication: OSTEOPOROSIS
     Dosage: 20 UG, QD
     Dates: start: 20111031
  3. FISH OIL [Concomitant]
     Dosage: UNK

REACTIONS (7)
  - ARTHROPATHY [None]
  - MUSCULOSKELETAL PAIN [None]
  - PNEUMONIA [None]
  - SURGERY [None]
  - HOSPITALISATION [None]
  - HYPERSENSITIVITY [None]
  - INCORRECT STORAGE OF DRUG [None]
